FAERS Safety Report 6884198-1 (Version None)
Quarter: 2010Q3

REPORT INFORMATION
  Report Type: 
  Country: None (occurrence: None)
  Receive Date: 20100729
  Receipt Date: 20070530
  Transmission Date: 20110219
  Serious: No
  Sender: FDA-Public Use
  Company Number: US-PFIZER INC-2007045028

PATIENT
  Sex: Female
  Weight: 45.36 kg

DRUGS (3)
  1. QUINAPRIL HCL [Suspect]
     Indication: HYPERTENSION
     Dates: start: 20060101
  2. ACTONEL [Concomitant]
  3. TOPROL-XL [Concomitant]

REACTIONS (1)
  - OCULAR HYPERAEMIA [None]
